FAERS Safety Report 6044720-4 (Version None)
Quarter: 2009Q1

REPORT INFORMATION
  Report Type: 
  Country: None (occurrence: None)
  Receive Date: 20090120
  Receipt Date: 20090114
  Transmission Date: 20090719
  Serious: No
  Sender: FDA-Public Use
  Company Number: US-B.I. PHARMACEUTICALS,INC./RIDGEFIELD-2009-BP-00450BP

PATIENT
  Sex: Female

DRUGS (3)
  1. COMBIVENT [Suspect]
     Indication: CHRONIC OBSTRUCTIVE PULMONARY DISEASE
     Dosage: 8PUF
     Dates: start: 19990701
  2. HEART MEDICATION [Concomitant]
     Indication: CARDIAC DISORDER
     Route: 048
  3. THYROID MEDICATION [Concomitant]
     Indication: THYROID DISORDER
     Route: 048

REACTIONS (4)
  - COUGH [None]
  - DRUG INEFFECTIVE [None]
  - DYSPHONIA [None]
  - INCREASED UPPER AIRWAY SECRETION [None]
